FAERS Safety Report 9366797 (Version 1)
Quarter: 2013Q2

REPORT INFORMATION
  Report Type: Spontaneous
  Country: FR (occurrence: FR)
  Receive Date: 20130625
  Receipt Date: 20130625
  Transmission Date: 20140414
  Serious: Yes (Hospitalization)
  Sender: FDA-Public Use
  Company Number: FR-TEVA-414991ISR

PATIENT
  Age: 88 Year
  Sex: Male

DRUGS (1)
  1. FUROSEMIDE TEVA 40 MG [Suspect]
     Route: 048

REACTIONS (5)
  - Vomiting [Unknown]
  - Agitation [Unknown]
  - Eating disorder [Unknown]
  - Dreamy state [Unknown]
  - Subileus [Unknown]
